FAERS Safety Report 18589237 (Version 3)
Quarter: 2021Q1

REPORT INFORMATION
  Report Type: Other
  Country: CN (occurrence: CN)
  Receive Date: 20201208
  Receipt Date: 20210113
  Transmission Date: 20210419
  Serious: Yes (Hospitalization)
  Sender: FDA-Public Use
  Company Number: CN-ROCHE-2727652

PATIENT
  Age: 75 Year
  Sex: Male

DRUGS (2)
  1. RANIBIZUMAB. [Suspect]
     Active Substance: RANIBIZUMAB
     Indication: DIABETIC RETINAL OEDEMA
     Route: 050
     Dates: start: 20190827
  2. ASPIRIN. [Concomitant]
     Active Substance: ASPIRIN
     Indication: PRODUCT USED FOR UNKNOWN INDICATION
     Dosage: 0.1 G, QD
     Route: 048
     Dates: start: 20200205

REACTIONS (18)
  - Left ventricular dysfunction [Recovering/Resolving]
  - Vertebral artery stenosis [Recovering/Resolving]
  - Cerebral arteriosclerosis [Recovering/Resolving]
  - Cerebral infarction [Recovering/Resolving]
  - Atrioventricular block first degree [Recovering/Resolving]
  - Lithiasis [Recovering/Resolving]
  - Muscular weakness [Recovering/Resolving]
  - Dizziness [Recovering/Resolving]
  - Mitral valve incompetence [Not Recovered/Not Resolved]
  - Biliary dilatation [Not Recovered/Not Resolved]
  - Aortic arteriosclerosis [Not Recovered/Not Resolved]
  - Cystitis [Recovering/Resolving]
  - Prostatomegaly [Recovering/Resolving]
  - Pancreatic duct dilatation [Not Recovered/Not Resolved]
  - Benign prostatic hyperplasia [Recovered/Resolved]
  - Aortic valve incompetence [Recovering/Resolving]
  - Cerebral atrophy [Recovering/Resolving]
  - Bladder discomfort [Recovering/Resolving]

NARRATIVE: CASE EVENT DATE: 20200123
